FAERS Safety Report 5059426-8 (Version None)
Quarter: 2006Q3

REPORT INFORMATION
  Report Type: 
  Country: None (occurrence: None)
  Receive Date: 20060718
  Receipt Date: 20060703
  Transmission Date: 20061208
  Serious: Yes (Other)
  Sender: FDA-Public Use
  Company Number: ENTC2006-0179

PATIENT
  Sex: Female

DRUGS (1)
  1. STALEVO 100 [Suspect]
     Dosage: ORAL
     Route: 048

REACTIONS (1)
  - COLITIS [None]
